FAERS Safety Report 7901698-3 (Version None)
Quarter: 2011Q4

REPORT INFORMATION
  Report Type: 
  Country: None (occurrence: None)
  Receive Date: 20111108
  Receipt Date: 20111101
  Transmission Date: 20120403
  Serious: Yes (Death, Hospitalization, Other)
  Sender: FDA-Public Use
  Company Number: JP-GENZYME-THYM-1002876

PATIENT
  Sex: Female
  Weight: 61 kg

DRUGS (15)
  1. PREDNISOLONE [Concomitant]
     Indication: IMMUNOSUPPRESSION
     Dosage: UNK
     Route: 065
     Dates: start: 20090924, end: 20091205
  2. ACYCLOVIR [Concomitant]
     Dosage: UNK
     Route: 065
     Dates: start: 20091103, end: 20091215
  3. METHOTREXATE [Concomitant]
     Indication: IMMUNOSUPPRESSION
     Dosage: UNK
     Route: 065
     Dates: start: 20090522, end: 20090522
  4. FLUDARABINE PHOSPHATE [Concomitant]
     Indication: IMMUNOSUPPRESSION
     Dosage: UNK
     Route: 065
     Dates: start: 20090514, end: 20090518
  5. MELPHALAN HYDROCHLORIDE [Concomitant]
     Indication: IMMUNOSUPPRESSION
     Dosage: UNK
     Route: 065
     Dates: start: 20090517, end: 20090518
  6. FLUCONAZOLE [Concomitant]
     Indication: INFECTION PROPHYLAXIS
     Dosage: UNK
     Route: 065
     Dates: start: 20090512, end: 20090522
  7. METHOTREXATE [Concomitant]
     Dosage: UNK
     Route: 065
     Dates: start: 20090524, end: 20090524
  8. METHYLPREDNISOLONE SODIUM SUCCINATE [Concomitant]
     Indication: IMMUNOSUPPRESSION
     Dosage: UNK
     Route: 065
     Dates: start: 20090518, end: 20090522
  9. SULFAMETHOPRIM [Concomitant]
     Indication: INFECTION PROPHYLAXIS
     Dosage: UNK
     Route: 065
     Dates: start: 20090608, end: 20091215
  10. TACROLIMUS [Concomitant]
     Indication: IMMUNOSUPPRESSION
     Dosage: UNK
     Route: 065
     Dates: start: 20090520, end: 20090908
  11. CYTARABINE [Concomitant]
     Indication: IMMUNOSUPPRESSION
     Dosage: UNK
     Route: 065
     Dates: start: 20090508, end: 20090508
  12. ACYCLOVIR [Concomitant]
     Indication: INFECTION PROPHYLAXIS
     Dosage: UNK
     Route: 065
     Dates: start: 20090501, end: 20090713
  13. METHOTREXATE [Concomitant]
     Dosage: UNK
     Route: 065
     Dates: start: 20090527, end: 20090527
  14. THYMOGLOBULIN [Suspect]
     Indication: BONE MARROW CONDITIONING REGIMEN
     Dosage: 125 MG, QD
     Route: 042
     Dates: start: 20090518, end: 20090520
  15. DEXAMETHASONE SODIUM PHOSPHATE [Concomitant]
     Indication: IMMUNOSUPPRESSION
     Dosage: UNK
     Route: 065
     Dates: start: 20090508, end: 20090508

REACTIONS (5)
  - EPSTEIN-BARR VIRUS ASSOCIATED LYMPHOPROLIFERATIVE DISORDER [None]
  - PNEUMONIA STAPHYLOCOCCAL [None]
  - CYTOMEGALOVIRUS INFECTION [None]
  - BRONCHOPULMONARY ASPERGILLOSIS [None]
  - ACUTE GRAFT VERSUS HOST DISEASE IN SKIN [None]
